FAERS Safety Report 21029007 (Version 4)
Quarter: 2022Q4

REPORT INFORMATION
  Report Type: Report from Study
  Country: US (occurrence: US)
  Receive Date: 20220630
  Receipt Date: 20221012
  Transmission Date: 20230113
  Serious: Yes (Hospitalization)
  Sender: FDA-Public Use
  Company Number: US-NOVARTISPH-NVSC2022US147503

PATIENT
  Age: 80 Year
  Sex: Female

DRUGS (1)
  1. ENTRESTO [Suspect]
     Active Substance: SACUBITRIL\VALSARTAN
     Indication: Product used for unknown indication
     Dosage: 1 DOSAGE FORM, BID (24/26 MG)
     Route: 048

REACTIONS (9)
  - Myocardial infarction [Recovered/Resolved]
  - Poor quality sleep [Not Recovered/Not Resolved]
  - Snoring [Unknown]
  - Arthralgia [Unknown]
  - Back pain [Unknown]
  - Blood sodium decreased [Unknown]
  - Diarrhoea [Unknown]
  - Blood pressure diastolic decreased [Unknown]
  - Cough [Unknown]

NARRATIVE: CASE EVENT DATE: 20220424
